FAERS Safety Report 8770865 (Version 2)
Quarter: 2012Q4

REPORT INFORMATION
  Report Type: Report from Study
  Country: CA (occurrence: CA)
  Receive Date: 20120911
  Receipt Date: 20120919
  Transmission Date: 20130627
  Serious: Yes (Hospitalization)
  Sender: FDA-Public Use
  Company Number: CA-JNJFOC-20120813277

PATIENT
  Age: 64 Year
  Sex: Female
  Weight: 49 kg

DRUGS (1)
  1. REMICADE [Suspect]
     Indication: CROHN^S DISEASE
     Dosage: start date of the drug: 27-AUG-2012

loading dose
     Route: 042
     Dates: start: 201208

REACTIONS (2)
  - Incisional drainage [Recovered/Resolved]
  - Joint swelling [Recovering/Resolving]
